FAERS Safety Report 13884889 (Version 2)
Quarter: 2017Q3

REPORT INFORMATION
  Report Type: Report from Study
  Country: CN (occurrence: CN)
  Receive Date: 20170821
  Receipt Date: 20170907
  Transmission Date: 20171127
  Serious: Yes (Other)
  Sender: FDA-Public Use
  Company Number: CN-ROCHE-1981831

PATIENT

DRUGS (1)
  1. ALTEPLASE. [Suspect]
     Active Substance: ALTEPLASE
     Indication: ISCHAEMIC STROKE
     Dosage: DOSE: 10% TOTAL DOSE (15MG) ADD 10ML NORMAL SALINE (NS), THE REST ADD 100ML NS VIA IV DRIP IN 1 HR.
     Route: 041

REACTIONS (1)
  - Cerebral haemorrhage [Unknown]
